FAERS Safety Report 10422343 (Version 5)
Quarter: 2017Q1

REPORT INFORMATION
  Report Type: Report from Study
  Country: NL (occurrence: NL)
  Receive Date: 20140901
  Receipt Date: 20170119
  Transmission Date: 20170428
  Serious: Yes (Death, Hospitalization)
  Sender: FDA-Public Use
  Company Number: NL-ASTRAZENECA-2014SE26149

PATIENT
  Age: 29055 Day
  Sex: Male

DRUGS (7)
  1. BIVALIRUDIN. [Suspect]
     Active Substance: BIVALIRUDIN
     Route: 042
     Dates: start: 20140111, end: 20140111
  2. CARBASALATE CALCIUM [Concomitant]
     Active Substance: CARBASPIRIN
     Route: 048
  3. PANTOPRAZOLE [Concomitant]
     Active Substance: PANTOPRAZOLE SODIUM
     Route: 048
  4. TICAGRELOR [Suspect]
     Active Substance: TICAGRELOR
     Indication: THROMBOSIS PROPHYLAXIS
     Route: 048
     Dates: start: 20140111
  5. ASPIRIN (NON-AZ PRODUCT) [Suspect]
     Active Substance: ASPIRIN
     Indication: THROMBOSIS PROPHYLAXIS
     Route: 048
  6. SIMVASTATIN. [Concomitant]
     Active Substance: SIMVASTATIN
     Route: 048
  7. METOPROLOL. [Concomitant]
     Active Substance: METOPROLOL
     Route: 048

REACTIONS (2)
  - Subarachnoid haemorrhage [Fatal]
  - Malignant hypertension [Fatal]

NARRATIVE: CASE EVENT DATE: 20140123
